FAERS Safety Report 20639155 (Version 1)
Quarter: 2022Q1

REPORT INFORMATION
  Report Type: Report from Study
  Country: CA (occurrence: CA)
  Receive Date: 20220326
  Receipt Date: 20220326
  Transmission Date: 20220424
  Serious: Yes (Other)
  Sender: FDA-Public Use
  Company Number: CA-NOVARTISPH-NVSC2021CA212945

PATIENT
  Age: 73 Year
  Sex: Female
  Weight: 57 kg

DRUGS (9)
  1. ROSUVASTATIN [Suspect]
     Active Substance: ROSUVASTATIN
     Indication: High density lipoprotein
     Dosage: UNK UNK, QD
     Route: 048
  2. PERINDOPRIL [Suspect]
     Active Substance: PERINDOPRIL
     Indication: Hypertension
     Dosage: UNK UNK, QD
     Route: 048
     Dates: start: 20210814
  3. CLOPIDOGREL [Suspect]
     Active Substance: CLOPIDOGREL BISULFATE
     Indication: Chest pain
     Dosage: UNK UNK, QD
     Route: 048
     Dates: start: 20210726
  4. VENTOLIN [Concomitant]
     Active Substance: ALBUTEROL SULFATE
     Indication: Anaemia
     Dosage: UNK UNK, QID X2 PUFFS X4 DAILY
     Route: 055
     Dates: start: 2011
  5. ADVAIR HFA [Concomitant]
     Active Substance: FLUTICASONE PROPIONATE\SALMETEROL XINAFOATE
     Indication: Anaemia
     Dosage: UNK, BID X2 PUFFS DAILY
     Route: 055
     Dates: start: 2018
  6. ALVESCO [Concomitant]
     Active Substance: CICLESONIDE
     Indication: Anaemia
     Dosage: UNK, QID X2 PUFFS X4 DAILY
     Route: 055
     Dates: start: 202009
  7. SPIRIVA [Concomitant]
     Active Substance: TIOTROPIUM BROMIDE MONOHYDRATE
     Indication: Anaemia
     Dosage: UNK, BID X2 PUFFS DAILY
     Route: 055
  8. FUROSEMIDE [Concomitant]
     Active Substance: FUROSEMIDE
     Indication: Cardiac failure
     Dosage: 1 DOSAGE FORM, QD
     Route: 048
     Dates: start: 20210814
  9. PROPRANOLOL [Concomitant]
     Active Substance: PROPRANOLOL HYDROCHLORIDE
     Indication: Cardiac disorder
     Dosage: UNK
     Route: 048
     Dates: start: 20210729

REACTIONS (9)
  - Forced expiratory volume decreased [Unknown]
  - Obstructive airways disorder [Unknown]
  - Mean cell volume abnormal [Unknown]
  - Red blood cell count increased [Unknown]
  - Blood immunoglobulin E abnormal [Unknown]
  - Pulmonary function test abnormal [Unknown]
  - Asthma [Unknown]
  - Sleep disorder [Unknown]
  - Weight increased [Unknown]

NARRATIVE: CASE EVENT DATE: 20210823
